FAERS Safety Report 16725691 (Version 3)
Quarter: 2019Q3

REPORT INFORMATION
  Report Type: Spontaneous
  Country: DE (occurrence: DE)
  Receive Date: 20190821
  Receipt Date: 20190822
  Transmission Date: 20191005
  Serious: Yes (Other)
  Sender: FDA-Public Use
  Company Number: PHHY2019DE169323

PATIENT
  Age: 72 Year
  Sex: Male

DRUGS (15)
  1. GRAMICIDIN+NEOMYCIN+POLYMYXIN B [Suspect]
     Active Substance: GRAMICIDIN\NEOMYCIN\POLYMYXIN B SULFATE
     Indication: KLEBSIELLA INFECTION
  2. MOXIFLOXACIN. [Suspect]
     Active Substance: MOXIFLOXACIN
     Indication: KLEBSIELLA INFECTION
  3. GRAMICIDIN+NEOMYCIN+POLYMYXIN B [Suspect]
     Active Substance: GRAMICIDIN\NEOMYCIN\POLYMYXIN B SULFATE
     Indication: KERATITIS BACTERIAL
     Dosage: UNK
     Route: 050
  4. CYCLOPENTOLATE. [Suspect]
     Active Substance: CYCLOPENTOLATE
     Indication: KLEBSIELLA INFECTION
  5. PHENYLEPHRINE [Suspect]
     Active Substance: PHENYLEPHRINE HYDROCHLORIDE
     Indication: KERATITIS BACTERIAL
  6. LEVOFLOXACIN. [Suspect]
     Active Substance: LEVOFLOXACIN
     Indication: KERATITIS BACTERIAL
     Dosage: UNK
     Route: 050
  7. PREDNISOLONE. [Suspect]
     Active Substance: PREDNISOLONE
     Indication: KLEBSIELLA INFECTION
  8. PHENYLEPHRINE [Suspect]
     Active Substance: PHENYLEPHRINE HYDROCHLORIDE
     Indication: KERATITIS BACTERIAL
     Dosage: UNK
     Route: 050
  9. PHENYLEPHRINE [Suspect]
     Active Substance: PHENYLEPHRINE HYDROCHLORIDE
     Indication: KLEBSIELLA INFECTION
  10. PHENYLEPHRINE [Suspect]
     Active Substance: PHENYLEPHRINE HYDROCHLORIDE
     Indication: KLEBSIELLA INFECTION
  11. LEVOFLOXACIN. [Suspect]
     Active Substance: LEVOFLOXACIN
     Indication: KLEBSIELLA INFECTION
  12. PREDNISOLONE. [Suspect]
     Active Substance: PREDNISOLONE
     Indication: KERATITIS BACTERIAL
     Dosage: UNK
     Route: 048
  13. MOXIFLOXACIN. [Suspect]
     Active Substance: MOXIFLOXACIN
     Indication: KERATITIS BACTERIAL
     Dosage: UNK
     Route: 048
  14. CYCLOPENTOLATE. [Suspect]
     Active Substance: CYCLOPENTOLATE
     Indication: KERATITIS BACTERIAL
     Dosage: UNK
     Route: 050
  15. CYCLOPENTOLATE. [Suspect]
     Active Substance: CYCLOPENTOLATE
     Indication: KERATITIS BACTERIAL

REACTIONS (3)
  - Drug resistance [Unknown]
  - Product use in unapproved indication [Unknown]
  - Drug ineffective [Unknown]
